FAERS Safety Report 4762620-4 (Version None)
Quarter: 2005Q3

REPORT INFORMATION
  Report Type: 
  Country: None (occurrence: None)
  Receive Date: 20050907
  Receipt Date: 20050728
  Transmission Date: 20060218
  Serious: Yes (Other)
  Sender: FDA-Public Use
  Company Number: IE-GLAXOSMITHKLINE-B0389675A

PATIENT
  Age: 28 Year
  Sex: Female
  Weight: 50.9 kg

DRUGS (2)
  1. LAMICTAL [Suspect]
     Indication: EPILEPSY
     Dosage: 100MG PER DAY
     Route: 065
     Dates: start: 20040112
  2. NO CONCURRENT MEDICATION [Concomitant]

REACTIONS (1)
  - ABORTION SPONTANEOUS [None]
